FAERS Safety Report 6381784-2 (Version None)
Quarter: 2009Q3

REPORT INFORMATION
  Report Type: 
  Country: None (occurrence: None)
  Receive Date: 20090930
  Receipt Date: 20090922
  Transmission Date: 20100115
  Serious: Yes (Hospitalization, Other)
  Sender: FDA-Public Use
  Company Number: AR-ELI_LILLY_AND_COMPANY-AR200909001851

PATIENT
  Age: 37 Year
  Sex: Female

DRUGS (2)
  1. BYETTA [Suspect]
     Indication: TYPE 1 DIABETES MELLITUS
     Dosage: 10 UG, 2/D
     Route: 065
     Dates: start: 20090401
  2. NOVOMIX /03581901/ [Concomitant]

REACTIONS (4)
  - INTENTIONAL DRUG MISUSE [None]
  - OFF LABEL USE [None]
  - OVARIAN CYST [None]
  - VAGINAL HAEMORRHAGE [None]
